FAERS Safety Report 17516062 (Version 2)
Quarter: 2020Q1

REPORT INFORMATION
  Report Type: Spontaneous
  Country: US (occurrence: US)
  Receive Date: 20200309
  Receipt Date: 20200313
  Transmission Date: 20200409
  Serious: Yes (Hospitalization, Other)
  Sender: FDA-Public Use
  Company Number: US-HBP-2020US020301

PATIENT
  Age: 67 Year
  Sex: Male

DRUGS (3)
  1. PSYLLIUM FIBRE [Concomitant]
  2. VALCHLOR [Suspect]
     Active Substance: MECHLORETHAMINE
     Indication: CUTANEOUS T-CELL LYMPHOMA
     Dosage: UNK, SINGLE
     Route: 061
  3. TYLENOL [Concomitant]
     Active Substance: ACETAMINOPHEN

REACTIONS (6)
  - Application site exfoliation [Not Recovered/Not Resolved]
  - Application site dryness [Not Recovered/Not Resolved]
  - Cervical spinal stenosis [Unknown]
  - Intentional dose omission [Unknown]
  - Application site pruritus [Not Recovered/Not Resolved]
  - Spinal operation [Unknown]

NARRATIVE: CASE EVENT DATE: 20200220
